FAERS Safety Report 15455669 (Version 1)
Quarter: 2018Q4

REPORT INFORMATION
  Report Type: Report from Study
  Country: CA (occurrence: CA)
  Receive Date: 20181002
  Receipt Date: 20181002
  Transmission Date: 20190204
  Serious: Yes (Death)
  Sender: FDA-Public Use
  Company Number: CA-JNJFOC-20180815175

PATIENT
  Age: 93 Year
  Sex: Male

DRUGS (1)
  1. ERLEADA [Suspect]
     Active Substance: APALUTAMIDE
     Indication: HORMONE-REFRACTORY PROSTATE CANCER
     Dosage: STRENGTH = 60 MG
     Route: 048
     Dates: start: 20180808, end: 20180831

REACTIONS (11)
  - Oedema peripheral [Unknown]
  - Fatigue [Unknown]
  - Hypoaesthesia [Unknown]
  - Cerebrovascular accident [Fatal]
  - Fall [Fatal]
  - Dizziness [Unknown]
  - Arthralgia [Unknown]
  - Pain in extremity [Unknown]
  - Decreased appetite [Unknown]
  - Constipation [Unknown]
  - Sensory disturbance [Unknown]

NARRATIVE: CASE EVENT DATE: 20180810
